FAERS Safety Report 11100063 (Version 1)
Quarter: 2015Q2

REPORT INFORMATION
  Report Type: Spontaneous
  Country: US (occurrence: None)
  Receive Date: 20150507
  Receipt Date: 20150507
  Transmission Date: 20150821
  Serious: Yes (Hospitalization)
  Sender: FDA-Public Use
  Company Number: None

PATIENT
  Age: 16 Year
  Sex: Female

DRUGS (1)
  1. MINOCYCLINE [Suspect]
     Active Substance: MINOCYCLINE\MINOCYCLINE HYDROCHLORIDE
     Indication: ACNE
     Dates: start: 20120818, end: 20130906

REACTIONS (7)
  - Transaminases increased [None]
  - Vomiting [None]
  - Nausea [None]
  - Smooth muscle antibody positive [None]
  - Blood bilirubin increased [None]
  - Antinuclear antibody positive [None]
  - Headache [None]

NARRATIVE: CASE EVENT DATE: 20130906
